FAERS Safety Report 17506935 (Version 1)
Quarter: 2020Q1

REPORT INFORMATION
  Report Type: Spontaneous
  Country: US (occurrence: US)
  Receive Date: 20200306
  Receipt Date: 20200306
  Transmission Date: 20200409
  Serious: Yes (Hospitalization, Other)
  Sender: FDA-Public Use
  Company Number: US-AUROBINDO-AUR-APL-2020-010600

PATIENT
  Age: 60 Year
  Sex: Female

DRUGS (1)
  1. PROPAFENONE HYDROCHLORIDE. [Suspect]
     Active Substance: PROPAFENONE HYDROCHLORIDE
     Indication: ATRIAL FIBRILLATION
     Dosage: 325 MILLIGRAM, TWO TIMES A DAY
     Route: 048

REACTIONS (11)
  - Hepatic steatosis [Unknown]
  - Nausea [Unknown]
  - Jaundice [Recovered/Resolved]
  - Transaminases increased [Recovered/Resolved]
  - Cholestatic liver injury [Recovering/Resolving]
  - Abdominal pain upper [Unknown]
  - Hepatocellular injury [Recovering/Resolving]
  - Weight decreased [Unknown]
  - Drug-induced liver injury [Recovering/Resolving]
  - Vomiting [Unknown]
  - Blood bilirubin increased [Recovering/Resolving]
